FAERS Safety Report 4323664-X (Version None)
Quarter: 2004Q1

REPORT INFORMATION
  Report Type: 
  Country: None (occurrence: None)
  Receive Date: 20040323
  Receipt Date: 20040308
  Transmission Date: 20041129
  Serious: Yes (Other)
  Sender: FDA-Public Use
  Company Number: GB-JNJFOC-20040302079

PATIENT
  Sex: Female

DRUGS (1)
  1. MICRONOR [Suspect]
     Dosage: 2 DOSE (S), 1 IN 1 DAY

REACTIONS (1)
  - AXILLARY VEIN THROMBOSIS [None]
